FAERS Safety Report 13312485 (Version 3)
Quarter: 2018Q2

REPORT INFORMATION
  Report Type: Spontaneous
  Country: FR (occurrence: FR)
  Receive Date: 20170309
  Receipt Date: 20180626
  Transmission Date: 20180711
  Serious: Yes (Death, Hospitalization, Other)
  Sender: FDA-Public Use
  Company Number: FR-TEVA-747389ROM

PATIENT
  Age: 71 Year
  Sex: Male

DRUGS (22)
  1. PIPERACILLIN AND TAZOBACTAM [Suspect]
     Active Substance: PIPERACILLIN SODIUM\TAZOBACTAM SODIUM
     Indication: SKIN INFECTION
     Dosage: 3 DOSAGE FORMS DAILY;
     Route: 042
     Dates: start: 20161204, end: 20170130
  2. KARDEGIC [Concomitant]
     Active Substance: ASPIRIN DL-LYSINE
  3. UMULINE [Concomitant]
     Active Substance: INSULIN HUMAN
  4. PANTOPRAZOLE SODIUM. [Suspect]
     Active Substance: PANTOPRAZOLE SODIUM
     Route: 048
     Dates: end: 20170119
  5. QUESTRAN [Suspect]
     Active Substance: CHOLESTYRAMINE
     Dosage: 1 DOSAGE FORMS DAILY;
     Route: 048
     Dates: start: 20161216, end: 20170119
  6. LOPERAMIDE ARROW [Concomitant]
     Active Substance: LOPERAMIDE
  7. POLARAMINE [Concomitant]
     Active Substance: DEXCHLORPHENIRAMINE MALEATE
  8. SYMBICORT [Suspect]
     Active Substance: BUDESONIDE\FORMOTEROL FUMARATE DIHYDRATE
     Dosage: 1 DOSAGE FORMS DAILY; INHALATION
     Route: 055
     Dates: start: 20161220, end: 20170119
  9. LANTUS [Concomitant]
     Active Substance: INSULIN GLARGINE
  10. NEFOPAM [Concomitant]
     Active Substance: NEFOPAM
  11. PANTOPRAZOLE SODIUM. [Suspect]
     Active Substance: PANTOPRAZOLE SODIUM
     Dosage: FOR 2 DAYS
     Route: 042
     Dates: start: 20161225
  12. RACECADOTRIL BIOGARAN 100 MG [Suspect]
     Active Substance: RACECADOTRIL
     Dosage: 3 DOSAGE FORMS DAILY;
     Route: 048
     Dates: start: 20161209, end: 20170119
  13. LINEZOLIDE ARROW 600 MG, COMPRIM? PELLICUL? [Suspect]
     Active Substance: LINEZOLID
     Indication: SKIN INFECTION
     Dosage: 1200 MILLIGRAM DAILY;
     Route: 048
     Dates: start: 20161222, end: 20170110
  14. ULTRAVIST [Suspect]
     Active Substance: IOPROMIDE
     Indication: COMPUTERISED TOMOGRAM
     Route: 042
     Dates: start: 20170116, end: 20170116
  15. TRAMADOL/PARACETAMOL MYLAN 37.5/325 MG [Suspect]
     Active Substance: ACETAMINOPHEN\TRAMADOL
     Dosage: 8 DOSAGE FORMS DAILY;
     Route: 048
     Dates: start: 20161201, end: 20170119
  16. PRIMPERAN [Suspect]
     Active Substance: METOCLOPRAMIDE HYDROCHLORIDE
     Dosage: 3 DOSAGE FORMS DAILY;
     Route: 048
     Dates: start: 20161224, end: 20170119
  17. DIFFU K [Concomitant]
     Active Substance: POTASSIUM CHLORIDE
  18. DUPHALAC [Concomitant]
     Active Substance: LACTULOSE
  19. CUBICIN [Suspect]
     Active Substance: DAPTOMYCIN
     Dosage: 800 MILLIGRAM DAILY;
     Route: 042
     Dates: start: 20170110, end: 20170201
  20. VANCOMYCIN HYDROCHLORIDE. [Suspect]
     Active Substance: VANCOMYCIN HYDROCHLORIDE
     Indication: PRODUCT USED FOR UNKNOWN INDICATION
     Route: 065
  21. FUROSEMIDE ARROW [Concomitant]
     Active Substance: FUROSEMIDE
  22. LOVENOX [Concomitant]
     Active Substance: ENOXAPARIN SODIUM

REACTIONS (18)
  - Generalised oedema [Unknown]
  - Death [Fatal]
  - Hepatic encephalopathy [Unknown]
  - Pulmonary interstitial emphysema syndrome [Unknown]
  - Sepsis [Unknown]
  - Dyspnoea [Not Recovered/Not Resolved]
  - Thrombocytopenia [Unknown]
  - Eosinophilic pneumonia [Unknown]
  - Hyperammonaemia [Not Recovered/Not Resolved]
  - Glomerular filtration rate decreased [Unknown]
  - Diffuse alveolar damage [Not Recovered/Not Resolved]
  - Acute kidney injury [Unknown]
  - Alveolar lung disease [Unknown]
  - Restlessness [Unknown]
  - Rectal haemorrhage [Unknown]
  - Eczema [Unknown]
  - Eosinophilia [Not Recovered/Not Resolved]
  - Rash maculo-papular [Not Recovered/Not Resolved]

NARRATIVE: CASE EVENT DATE: 20161227
